FAERS Safety Report 13849007 (Version 12)
Quarter: 2018Q3

REPORT INFORMATION
  Report Type: Report from Study
  Country: AU (occurrence: AU)
  Receive Date: 20170809
  Receipt Date: 20180905
  Transmission Date: 20181010
  Serious: Yes (Hospitalization, Other)
  Sender: FDA-Public Use
  Company Number: AU-BIOGEN-2017BI00443654

PATIENT
  Age: 50 Year
  Sex: Female

DRUGS (1)
  1. TYSABRI [Suspect]
     Active Substance: NATALIZUMAB
     Indication: MULTIPLE SCLEROSIS
     Dosage: INFUSED FOR 1 HOUR
     Route: 042
     Dates: start: 20160905

REACTIONS (24)
  - Iron deficiency [Not Recovered/Not Resolved]
  - Feeling abnormal [Not Recovered/Not Resolved]
  - Speech disorder [Not Recovered/Not Resolved]
  - Dyspnoea [Not Recovered/Not Resolved]
  - Headache [Not Recovered/Not Resolved]
  - Fatigue [Not Recovered/Not Resolved]
  - Body temperature increased [Not Recovered/Not Resolved]
  - Neck pain [Not Recovered/Not Resolved]
  - Diabetes mellitus [Unknown]
  - Ovarian cyst [Not Recovered/Not Resolved]
  - Heart rate increased [Not Recovered/Not Resolved]
  - Urinary tract infection [Not Recovered/Not Resolved]
  - Angiomyolipoma [Not Recovered/Not Resolved]
  - Menorrhagia [Not Recovered/Not Resolved]
  - Nasopharyngitis [Recovered/Resolved]
  - Pneumonia [Not Recovered/Not Resolved]
  - Muscle twitching [Recovered/Resolved]
  - Pain [Not Recovered/Not Resolved]
  - Multiple sclerosis [Not Recovered/Not Resolved]
  - Cough [Not Recovered/Not Resolved]
  - Endometrial thickening [Not Recovered/Not Resolved]
  - Grief reaction [Not Recovered/Not Resolved]
  - Muscle spasms [Recovered/Resolved]
  - Stress [Unknown]

NARRATIVE: CASE EVENT DATE: 20170807
